FAERS Safety Report 18883556 (Version 3)
Quarter: 2021Q1

REPORT INFORMATION
  Report Type: Report from Study
  Country: FR (occurrence: FR)
  Receive Date: 20210212
  Receipt Date: 20210225
  Transmission Date: 20210420
  Serious: Yes (Hospitalization)
  Sender: FDA-Public Use
  Company Number: NVSC2021FR030122

PATIENT
  Age: 7 Month
  Sex: Female
  Weight: 9.52 kg

DRUGS (2)
  1. ZOLGENSMA [Suspect]
     Active Substance: ONASEMNOGENE ABEPARVOVEC-XIOI
     Indication: SPINAL MUSCULAR ATROPHY
     Dosage: 52 ML, ONCE/SINGLE (1.046 X 10E15 GENOME VECTOR/ML)
     Route: 042
     Dates: start: 20201106
  2. PREDNISOLONE. [Concomitant]
     Active Substance: PREDNISOLONE
     Indication: PRODUCT USED FOR UNKNOWN INDICATION
     Dosage: UNK (ADMINISTERED 24HR BEFORE ZOLGENSMA)
     Route: 065

REACTIONS (9)
  - Lower respiratory tract congestion [Unknown]
  - Papule [Unknown]
  - Troponin increased [Unknown]
  - Lymphopenia [Unknown]
  - Aspartate aminotransferase increased [Unknown]
  - Decreased appetite [Unknown]
  - Rhinitis [Unknown]
  - Alanine aminotransferase increased [Unknown]
  - Pyrexia [Unknown]

NARRATIVE: CASE EVENT DATE: 20201109
